FAERS Safety Report 16170388 (Version 1)
Quarter: 2019Q2

REPORT INFORMATION
  Report Type: Spontaneous
  Country: ES (occurrence: ES)
  Receive Date: 20190408
  Receipt Date: 20190408
  Transmission Date: 20190711
  Serious: Yes (Other)
  Sender: FDA-Public Use
  Company Number: ES-TEVA-2019-ES-1033485

PATIENT
  Age: 61 Year
  Sex: Male

DRUGS (4)
  1. SENSEDOL 0.075% CREMA , 1 TUBO DE 30 G [Concomitant]
  2. TAMSULOSINA 0,4 MG C?PSULA LIBERACI?N MODIFICADA [Suspect]
     Active Substance: TAMSULOSIN
     Indication: BENIGN PROSTATIC HYPERPLASIA
     Dosage: .4 MILLIGRAM DAILY;
     Route: 048
     Dates: start: 20181127, end: 20190205
  3. DILTIAZEM 200 MG C?PSULA LIBERACI?N MODIFICADA [Concomitant]
  4. CANDESART?N 32 MG COMPRIMIDO [Concomitant]

REACTIONS (2)
  - Myalgia [Recovering/Resolving]
  - Pain in extremity [Recovering/Resolving]

NARRATIVE: CASE EVENT DATE: 20181220
